FAERS Safety Report 5180998-7 (Version None)
Quarter: 2006Q4

REPORT INFORMATION
  Report Type: 
  Country: None (occurrence: None)
  Receive Date: 20061212
  Receipt Date: 20061129
  Transmission Date: 20070319
  Serious: Yes (Death, Hospitalization)
  Sender: FDA-Public Use
  Company Number: GBWYE698529NOV06

PATIENT
  Age: 74 Year
  Sex: Male

DRUGS (9)
  1. RAPAMUNE [Suspect]
     Indication: PROPHYLAXIS AGAINST TRANSPLANT REJECTION
     Dosage: 2 MG 1X PER 1 DAY ORAL
     Route: 048
     Dates: start: 20060914, end: 20061002
  2. ALFACALCIDOL               (ALFACALCIDOL, , 0) [Suspect]
     Indication: PROPHYLAXIS AGAINST TRANSPLANT REJECTION
     Dosage: 0.25 UG 1X PER 1 DAY ORAL
     Route: 048
     Dates: start: 20060928, end: 20061002
  3. SODIUM BICARBONATE [Suspect]
     Dosage: 1 G 3X PER 1 DAY ORAL
     Route: 048
     Dates: start: 20060601
  4. AZATHIOPRINE [Concomitant]
  5. CHOLESTYRAMINE [Concomitant]
  6. FOLIC ACID [Concomitant]
  7. LOPERAMIDE HCL [Concomitant]
  8. OMEPRAZOLE [Concomitant]
  9. TACROLIMUS             (TACROLIMUS) [Concomitant]

REACTIONS (17)
  - AORTIC ARTERIOSCLEROSIS [None]
  - ARTERIOSCLEROSIS [None]
  - ARTERIOSCLEROSIS CORONARY ARTERY [None]
  - BRONCHOPNEUMONIA [None]
  - CALCIUM DEFICIENCY [None]
  - NEUTROPENIA [None]
  - NEUTROPENIC SEPSIS [None]
  - PLATELET COUNT DECREASED [None]
  - PLEURAL CALCIFICATION [None]
  - PLEURAL EFFUSION [None]
  - PNEUMONIA STAPHYLOCOCCAL [None]
  - PROSTATE CANCER [None]
  - PULMONARY OEDEMA [None]
  - SEPTIC SHOCK [None]
  - TRACHEOBRONCHITIS [None]
  - VENTRICULAR HYPERTROPHY [None]
  - WHITE BLOOD CELL COUNT DECREASED [None]
